FAERS Safety Report 4912335-4 (Version None)
Quarter: 2006Q1

REPORT INFORMATION
  Report Type: 
  Country: None (occurrence: None)
  Receive Date: 20060215
  Receipt Date: 20040129
  Transmission Date: 20060701
  Serious: No
  Sender: FDA-Public Use
  Company Number: US-GLAXOSMITHKLINE-A0495761A

PATIENT
  Age: 43 Year
  Sex: Female

DRUGS (2)
  1. VALTREX [Suspect]
     Dosage: 1G PER DAY
     Route: 048
     Dates: start: 20010101, end: 20040101
  2. ACYCLOVIR SODIUM [Suspect]

REACTIONS (10)
  - ARTHRALGIA [None]
  - BLOOD ALKALINE PHOSPHATASE DECREASED [None]
  - BONE PAIN [None]
  - COMPLEMENT FACTOR C3 DECREASED [None]
  - FINGER DEFORMITY [None]
  - GINGIVAL RECESSION [None]
  - INTERVERTEBRAL DISC DISORDER [None]
  - LOCAL SWELLING [None]
  - SKELETAL INJURY [None]
  - SKIN DISORDER [None]
